FAERS Safety Report 6728333-4 (Version None)
Quarter: 2010Q2

REPORT INFORMATION
  Report Type: 
  Country: None (occurrence: None)
  Receive Date: 20100517
  Receipt Date: 20100512
  Transmission Date: 20101027
  Serious: Yes (Other)
  Sender: FDA-Public Use
  Company Number: GB-BAXTER-2010BH012784

PATIENT
  Age: 71 Year
  Sex: Male

DRUGS (11)
  1. FEIBA VH IMMUNO [Suspect]
     Indication: HAEMATEMESIS
     Route: 065
  2. FEIBA VH IMMUNO [Suspect]
     Indication: FACTOR VIII DEFICIENCY
     Route: 065
  3. FEIBA VH IMMUNO [Suspect]
     Indication: FACTOR VIII INHIBITION
     Route: 065
  4. FEIBA VH IMMUNO [Suspect]
     Route: 065
  5. FEIBA VH IMMUNO [Suspect]
     Route: 065
  6. FEIBA VH IMMUNO [Suspect]
     Route: 065
  7. NOVOSEVEN [Suspect]
     Indication: HAEMATEMESIS
     Route: 042
  8. NOVOSEVEN [Suspect]
     Route: 042
  9. TRANEXAMIC ACID [Suspect]
     Indication: DRUG USE FOR UNKNOWN INDICATION
     Route: 065
  10. ANTIBIOTICS [Concomitant]
     Indication: DRUG USE FOR UNKNOWN INDICATION
     Route: 065
  11. GLYPRESSIN [Concomitant]
     Indication: DRUG USE FOR UNKNOWN INDICATION
     Route: 065

REACTIONS (1)
  - DISSEMINATED INTRAVASCULAR COAGULATION [None]
